FAERS Safety Report 18920555 (Version 1)
Quarter: 2021Q1

REPORT INFORMATION
  Report Type: Report from Study
  Country: CA (occurrence: CA)
  Receive Date: 20210222
  Receipt Date: 20210222
  Transmission Date: 20210420
  Serious: Yes (Other)
  Sender: FDA-Public Use
  Company Number: CA-JNJFOC-20210227539

PATIENT
  Age: 17 Year
  Sex: Female

DRUGS (1)
  1. REMICADE [Suspect]
     Active Substance: INFLIXIMAB
     Indication: COLITIS ULCERATIVE
     Dosage: DOSE: 7.5 MG/KG
     Route: 042
     Dates: start: 20180209

REACTIONS (2)
  - Ankle fracture [Recovered/Resolved]
  - Ligament disorder [Unknown]

NARRATIVE: CASE EVENT DATE: 20210210
